FAERS Safety Report 6883141-9 (Version None)
Quarter: 2010Q3

REPORT INFORMATION
  Report Type: 
  Country: None (occurrence: None)
  Receive Date: 20100729
  Receipt Date: 20100714
  Transmission Date: 20110219
  Serious: Yes (Other)
  Sender: FDA-Public Use
  Company Number: JP-BAYER-201030953GPV

PATIENT
  Age: 64 Year
  Sex: Male

DRUGS (5)
  1. TICLOPIDINE HCL [Suspect]
     Indication: ANTIPLATELET THERAPY
  2. TICLOPIDINE HCL [Suspect]
  3. ASPIRIN [Suspect]
  4. HEPARIN [Suspect]
     Indication: NEPHRECTOMY
  5. WHOLE BLOOD [Concomitant]

REACTIONS (2)
  - ABSCESS [None]
  - RETROPERITONEAL HAEMATOMA [None]
